FAERS Safety Report 9576865 (Version 1)
Quarter: 2013Q4

REPORT INFORMATION
  Report Type: Spontaneous
  Country: US (occurrence: US)
  Receive Date: 20131001
  Receipt Date: 20131001
  Transmission Date: 20140711
  Serious: No
  Sender: FDA-Public Use
  Company Number: US-AMGEN-USASP2013005469

PATIENT
  Sex: Female
  Weight: 67.12 kg

DRUGS (15)
  1. ENBREL [Suspect]
     Indication: PRODUCT USED FOR UNKNOWN INDICATION
     Dosage: 50 MG, QWK
     Route: 058
  2. CYMBALTA [Concomitant]
     Dosage: 20 MG, UNK
  3. SINGULAIR [Concomitant]
     Dosage: 10 MG, UNK
  4. NORVASC [Concomitant]
     Dosage: 2.5 MG, UNK
  5. LIPITOR [Concomitant]
     Dosage: 10 MG, UNK
  6. DIOVAN [Concomitant]
     Dosage: 160 MG, UNK
  7. NORTRIPTYLINE [Concomitant]
     Dosage: 25 MG, UNK
  8. NAPROXEN [Concomitant]
     Dosage: 375 MG, UNK
  9. EPIPEN JR [Concomitant]
     Dosage: 0.3 MG, UNK
  10. PREVACID [Concomitant]
     Dosage: 30 MG, UNK
  11. MULTIVITAMINS, PLAIN [Concomitant]
     Dosage: UNK
  12. ACTOS [Concomitant]
     Dosage: 30 MG, UNK
  13. GLUMETZA [Concomitant]
     Dosage: 1000 MG, UNK
  14. CALCIUM D                          /01483701/ [Concomitant]
     Dosage: 1000 UNK, UNK
  15. FOLIC ACID [Concomitant]
     Dosage: UNK

REACTIONS (1)
  - Constipation [Unknown]
